FAERS Safety Report 23576571 (Version 1)
Quarter: 2024Q1

REPORT INFORMATION
  Report Type: Spontaneous
  Country: TH (occurrence: TH)
  Receive Date: 20240228
  Receipt Date: 20240228
  Transmission Date: 20240409
  Serious: Yes (Other)
  Sender: FDA-Public Use
  Company Number: TH-FreseniusKabi-FK202403136

PATIENT
  Age: 68 Year
  Sex: Female

DRUGS (2)
  1. CARBOPLATIN [Suspect]
     Active Substance: CARBOPLATIN
     Indication: Ovarian cancer
     Dosage: 150 MG; 304 VIAL?AT DAY 7,9,10 AFTER RECEIVING KEMOCARB?FORM: INJECTION?150MG15ML
  2. CARBOPLATIN [Suspect]
     Active Substance: CARBOPLATIN
     Dosage: 450 MG; 204 VIAL?AT DAY 7,9,10 AFTER RECEIVING KEMOCARB?FORM: INJECTION?450 MG 45 ML

REACTIONS (1)
  - Erythema multiforme [Unknown]
